FAERS Safety Report 6030673-1 (Version None)
Quarter: 2009Q1

REPORT INFORMATION
  Report Type: 
  Country: None (occurrence: None)
  Receive Date: 20090106
  Receipt Date: 20090106
  Transmission Date: 20090719
  Serious: Yes (Life-Threatening, Hospitalization, Disabling)
  Sender: FDA-Public Use
  Company Number: None

PATIENT
  Age: 33 Year
  Sex: Female
  Weight: 67.1324 kg

DRUGS (1)
  1. IODINE BASED CONTRAST DYE [Suspect]
     Indication: COMPUTERISED TOMOGRAM
     Dates: start: 20080602, end: 20080602

REACTIONS (14)
  - ASTHMA [None]
  - BLOOD PRESSURE DECREASED [None]
  - CONTRAST MEDIA REACTION [None]
  - DYSPNOEA [None]
  - FALL [None]
  - FEELING ABNORMAL [None]
  - GASTROINTESTINAL PAIN [None]
  - HYPERVENTILATION [None]
  - INJECTION SITE ANAESTHESIA [None]
  - MUSCLE SPASMS [None]
  - MUSCLE TWITCHING [None]
  - PALPITATIONS [None]
  - POSTURAL ORTHOSTATIC TACHYCARDIA SYNDROME [None]
  - SINUS HEADACHE [None]
